FAERS Safety Report 5170170-9 (Version None)
Quarter: 2006Q4

REPORT INFORMATION
  Report Type: 
  Country: None (occurrence: None)
  Receive Date: 20061204
  Receipt Date: 20061122
  Transmission Date: 20070319
  Serious: Yes (Other)
  Sender: FDA-Public Use
  Company Number: 2006145449

PATIENT
  Age: 43 Year
  Sex: Male

DRUGS (3)
  1. LYRICA [Suspect]
     Dosage: ORAL
     Route: 048
  2. TRIBULUS (TRIBULUS) [Suspect]
     Dosage: ORAL
     Route: 048
  3. ALL OTHER THERAPEUTIC PRODUCTS (ALL OTHER THERAPEUTIC PRODUCTS) [Concomitant]

REACTIONS (1)
  - BLOOD TESTOSTERONE ABNORMAL [None]
